FAERS Safety Report 10945919 (Version 3)
Quarter: 2015Q2

REPORT INFORMATION
  Report Type: Spontaneous
  Country: US (occurrence: US)
  Receive Date: 20150323
  Receipt Date: 20150609
  Transmission Date: 20150821
  Serious: Yes (Hospitalization, Other)
  Sender: FDA-Public Use
  Company Number: US-BAYER-2015-045121

PATIENT
  Age: 27 Year
  Sex: Female
  Weight: 54 kg

DRUGS (2)
  1. MIRENA [Suspect]
     Active Substance: LEVONORGESTREL
     Indication: CONTRACEPTION
     Dosage: 20 MCG/24HR, CONT
     Route: 015
     Dates: start: 20100526, end: 20100526
  2. MIRENA [Suspect]
     Active Substance: LEVONORGESTREL
     Indication: CONTRACEPTION
     Dosage: 20 MCG/24HR, CONT
     Route: 015
     Dates: start: 20100526, end: 20130408

REACTIONS (8)
  - Procedural pain [None]
  - Injury [None]
  - Device difficult to use [None]
  - Device issue [None]
  - Embedded device [None]
  - Pain [None]
  - Medical device discomfort [None]
  - Genital haemorrhage [None]

NARRATIVE: CASE EVENT DATE: 201303
